FAERS Safety Report 9907175 (Version 1)
Quarter: 2014Q1

REPORT INFORMATION
  Report Type: Spontaneous
  Country: KR (occurrence: KR)
  Receive Date: 20140218
  Receipt Date: 20140218
  Transmission Date: 20141002
  Serious: Yes (Death, Other)
  Sender: FDA-Public Use
  Company Number: KR-JHP PHARMACEUTICALS, LLC-JHP201400048

PATIENT
  Age: 75 Year
  Sex: Male

DRUGS (12)
  1. COLY-MYCIN M PARENTERAL [Suspect]
     Indication: PNEUMONIA
     Dosage: 150 MG, DAILY
     Route: 055
  2. CEFOPERAZONE W/SULBACTAM [Concomitant]
  3. IMIPENEM CILASTATIN [Concomitant]
  4. TEICOPLANIN [Concomitant]
  5. DIGOXIN [Concomitant]
  6. ERDOSTEINE [Concomitant]
  7. ASPIRIN [Concomitant]
  8. FUROSEMIDE [Concomitant]
  9. TRIMETAZIDIN [Concomitant]
  10. CANDESARTAN [Concomitant]
  11. LAFUTIDINE [Concomitant]
  12. ENOXAPARIN [Concomitant]

REACTIONS (3)
  - Acute myocardial infarction [Fatal]
  - Staphylococcal infection [Unknown]
  - Off label use [Unknown]
